FAERS Safety Report 4655995-8 (Version None)
Quarter: 2005Q2

REPORT INFORMATION
  Report Type: 
  Country: None (occurrence: None)
  Receive Date: 20050505
  Receipt Date: 20050419
  Transmission Date: 20051028
  Serious: Yes (Other)
  Sender: FDA-Public Use
  Company Number: FR_050406267

PATIENT
  Age: 45 Year
  Sex: Male
  Weight: 100 kg

DRUGS (1)
  1. GEMZAR [Suspect]
     Indication: PERITONEAL CARCINOMA
     Dosage: 800 MG/M2 OTHER
     Dates: start: 20050126

REACTIONS (4)
  - ASTHMA [None]
  - INFLUENZA [None]
  - PERICARDIAL EFFUSION [None]
  - VIRAL INFECTION [None]
